FAERS Safety Report 13413978 (Version 2)
Quarter: 2018Q1

REPORT INFORMATION
  Report Type: Spontaneous
  Country: US (occurrence: US)
  Receive Date: 20170406
  Receipt Date: 20180118
  Transmission Date: 20180508
  Serious: No
  Sender: FDA-Public Use
  Company Number: US-JNJFOC-20170315347

PATIENT
  Sex: Male

DRUGS (6)
  1. RISPERDAL [Suspect]
     Active Substance: RISPERIDONE
     Indication: ABNORMAL BEHAVIOUR
     Dosage: 0.25 MG, 0.5 MG, 1 MG
     Route: 048
     Dates: start: 20051221, end: 20110912
  2. RISPERIDONE. [Suspect]
     Active Substance: RISPERIDONE
     Indication: NEGATIVISM
     Route: 048
     Dates: start: 20081211, end: 20100409
  3. RISPERDAL [Suspect]
     Active Substance: RISPERIDONE
     Indication: ATTENTION DEFICIT/HYPERACTIVITY DISORDER
     Dosage: 0.25 MG, 0.5 MG, 1 MG
     Route: 048
     Dates: start: 20051221, end: 20110912
  4. RISPERDAL [Suspect]
     Active Substance: RISPERIDONE
     Indication: NEGATIVISM
     Dosage: 0.25 MG, 0.5 MG, 1 MG
     Route: 048
     Dates: start: 20051221, end: 20110912
  5. RISPERIDONE. [Suspect]
     Active Substance: RISPERIDONE
     Indication: ATTENTION DEFICIT/HYPERACTIVITY DISORDER
     Route: 048
     Dates: start: 20081211, end: 20100409
  6. RISPERIDONE. [Suspect]
     Active Substance: RISPERIDONE
     Indication: ABNORMAL BEHAVIOUR
     Route: 048
     Dates: start: 20081211, end: 20100409

REACTIONS (2)
  - Gynaecomastia [Unknown]
  - Emotional disorder [Unknown]
